FAERS Safety Report 12789405 (Version 1)
Quarter: 2016Q3

REPORT INFORMATION
  Report Type: Spontaneous
  Country: US (occurrence: US)
  Receive Date: 20160928
  Receipt Date: 20160928
  Transmission Date: 20161109
  Serious: Yes (Death)
  Sender: FDA-Public Use
  Company Number: US-BIOCRYST PHARMACEUTICALS, INC.-2016BCR00212

PATIENT

DRUGS (1)
  1. RAPIVAB [Suspect]
     Active Substance: PERAMIVIR
     Dosage: UNK
     Dates: start: 2009

REACTIONS (1)
  - Death [Fatal]
